FAERS Safety Report 25456511 (Version 3)
Quarter: 2025Q3

REPORT INFORMATION
  Report Type: Spontaneous
  Country: JP (occurrence: JP)
  Receive Date: 20250619
  Receipt Date: 20250718
  Transmission Date: 20251021
  Serious: Yes (Death, Other)
  Sender: GILEAD
  Company Number: JP-GILEAD-2025-0717292

PATIENT
  Age: 46 Year
  Sex: Male

DRUGS (4)
  1. VEMLIDY [Suspect]
     Active Substance: TENOFOVIR ALAFENAMIDE FUMARATE
     Indication: Chronic hepatitis B
     Dosage: 25 MG, QD
     Route: 048
     Dates: start: 20250430, end: 202505
  2. TIVICAY [Concomitant]
     Active Substance: DOLUTEGRAVIR SODIUM
     Dates: start: 202504, end: 202505
  3. LAMIVUDINE [Concomitant]
     Active Substance: LAMIVUDINE
     Dates: start: 202504, end: 202505
  4. AMBISOME [Concomitant]
     Active Substance: AMPHOTERICIN B
     Indication: Paracoccidioides infection
     Dates: start: 202504

REACTIONS (2)
  - Gastrointestinal haemorrhage [Fatal]
  - Disseminated paracoccidioidomycosis [Unknown]

NARRATIVE: CASE EVENT DATE: 20250101
